FAERS Safety Report 15035059 (Version 4)
Quarter: 2018Q4

REPORT INFORMATION
  Report Type: Spontaneous
  Country: US (occurrence: US)
  Receive Date: 20180620
  Receipt Date: 20181101
  Transmission Date: 20190204
  Serious: No
  Sender: FDA-Public Use
  Company Number: US-PFIZER INC-2018247767

PATIENT
  Age: 64 Year
  Sex: Female
  Weight: 73 kg

DRUGS (1)
  1. XELJANZ XR [Suspect]
     Active Substance: TOFACITINIB CITRATE
     Indication: RHEUMATOID ARTHRITIS
     Dosage: 11 MG, 1X/DAY
     Route: 048
     Dates: start: 201804

REACTIONS (7)
  - Fatigue [Unknown]
  - Headache [Unknown]
  - Nasal congestion [Unknown]
  - Upper respiratory tract infection [Unknown]
  - Pain in extremity [Unknown]
  - Musculoskeletal pain [Unknown]
  - Fungal infection [Unknown]

NARRATIVE: CASE EVENT DATE: 2018
